FAERS Safety Report 23989513 (Version 2)
Quarter: 2024Q4

REPORT INFORMATION
  Report Type: Spontaneous
  Country: US (occurrence: US)
  Receive Date: 20240619
  Receipt Date: 20241018
  Transmission Date: 20250115
  Serious: No
  Sender: CALLIDITAS THERAPEUTICS AB
  Company Number: US-Calliditas-2024CAL01080

PATIENT
  Age: 59 Year
  Sex: Male
  Weight: 84.3 kg

DRUGS (9)
  1. TARPEYO [Suspect]
     Active Substance: BUDESONIDE
     Indication: Haematuria
     Route: 048
     Dates: start: 20240321
  2. TRAZODONE [Concomitant]
     Active Substance: TRAZODONE HYDROCHLORIDE
  3. LOPRESSOR [Concomitant]
     Active Substance: METOPROLOL TARTRATE
  4. LOKELMA [Concomitant]
     Active Substance: SODIUM ZIRCONIUM CYCLOSILICATE
  5. LISINOPRIL [Concomitant]
     Active Substance: LISINOPRIL
  6. NORCO [Concomitant]
     Active Substance: ACETAMINOPHEN\HYDROCODONE BITARTRATE
  7. ULORIC [Concomitant]
     Active Substance: FEBUXOSTAT
  8. ELIQUIS [Concomitant]
     Active Substance: APIXABAN
  9. COLCRYS [Concomitant]
     Active Substance: COLCHICINE

REACTIONS (4)
  - Weight increased [Unknown]
  - Energy increased [Unknown]
  - Off label use [Unknown]
  - Hypertension [Unknown]
